FAERS Safety Report 5526678-7 (Version None)
Quarter: 2007Q4

REPORT INFORMATION
  Report Type: 
  Country: None (occurrence: None)
  Receive Date: 20071120
  Receipt Date: 20061002
  Transmission Date: 20080405
  Serious: Yes (Other)
  Sender: FDA-Public Use
  Company Number: 2006119712

PATIENT
  Age: 51 Year
  Sex: Male

DRUGS (2)
  1. TIKOSYN [Suspect]
     Indication: ATRIAL FIBRILLATION
     Dosage: 1 MG (0.5 MG,2 IN 1 D),ORAL ; 1 MG (0.5 MG,2 IN 1 D),ORAL
     Route: 048
     Dates: start: 20060701, end: 20060801
  2. TIKOSYN [Suspect]
     Indication: ATRIAL FIBRILLATION
     Dosage: 1 MG (0.5 MG,2 IN 1 D),ORAL ; 1 MG (0.5 MG,2 IN 1 D),ORAL
     Route: 048
     Dates: start: 20060901

REACTIONS (1)
  - ATRIAL FIBRILLATION [None]
